FAERS Safety Report 11928354 (Version 2)
Quarter: 2016Q1

REPORT INFORMATION
  Report Type: Spontaneous
  Country: MA (occurrence: MA)
  Receive Date: 20160119
  Receipt Date: 20160218
  Transmission Date: 20160526
  Serious: Yes (Congenital Anomaly, Other)
  Sender: FDA-Public Use
  Company Number: MA-PFIZER INC-2015457993

PATIENT

DRUGS (1)
  1. ALPRAZ [Suspect]
     Active Substance: ALPRAZOLAM
     Indication: ANXIETY
     Dosage: UNK
     Route: 064

REACTIONS (5)
  - Dysmorphism [Unknown]
  - Delayed closure of cranial sutures [Unknown]
  - Congenital anomaly [Unknown]
  - Maternal drugs affecting foetus [None]
  - Maternal exposure during pregnancy [Unknown]
